FAERS Safety Report 25308153 (Version 2)
Quarter: 2025Q3

REPORT INFORMATION
  Report Type: Report from Study
  Country: US (occurrence: US)
  Receive Date: 20250513
  Receipt Date: 20250721
  Transmission Date: 20251021
  Serious: Yes (Other)
  Sender: IDORSIA PHARMACEUTICALS
  Company Number: US-IDORSIA-009999-2025-US

PATIENT
  Age: 86 Year
  Sex: Female

DRUGS (14)
  1. TRYVIO [Suspect]
     Active Substance: APROCITENTAN
     Indication: Hypertension
     Dosage: 12.5 MG, QD
     Route: 048
     Dates: start: 20250408
  2. ASPIRIN [Concomitant]
     Active Substance: ASPIRIN
  3. CARAFATE [Concomitant]
     Active Substance: SUCRALFATE
  4. CLONIDINE [Concomitant]
     Active Substance: CLONIDINE
  5. DICYCLOMINE [Concomitant]
     Active Substance: DICYCLOMINE HYDROCHLORIDE
  6. FUROSEMIDE [Concomitant]
     Active Substance: FUROSEMIDE
  7. LOMOTIL [Concomitant]
     Active Substance: ATROPINE SULFATE\DIPHENOXYLATE HYDROCHLORIDE
  8. METOPROLOL [Concomitant]
     Active Substance: METOPROLOL
  9. VITAMINS [Concomitant]
     Active Substance: VITAMINS
  10. TYLENOL [Concomitant]
     Active Substance: ACETAMINOPHEN
  11. VALIUM [Concomitant]
     Active Substance: DIAZEPAM
  12. VITAMIN C [Concomitant]
     Active Substance: ASCORBIC ACID
  13. XOPENEX HFA [Concomitant]
     Active Substance: LEVALBUTEROL TARTRATE
  14. ZETIA [Concomitant]
     Active Substance: EZETIMIBE

REACTIONS (7)
  - Loss of consciousness [Unknown]
  - Fall [Unknown]
  - Chest pain [Not Recovered/Not Resolved]
  - Heart rate increased [Unknown]
  - Nausea [Not Recovered/Not Resolved]
  - Drug ineffective [Not Recovered/Not Resolved]
  - Muscle spasms [Unknown]

NARRATIVE: CASE EVENT DATE: 20250425
